FAERS Safety Report 7929918-X (Version None)
Quarter: 2011Q4

REPORT INFORMATION
  Report Type: 
  Country: None (occurrence: None)
  Receive Date: 20111108
  Receipt Date: 20110211
  Transmission Date: 20120403
  Serious: Yes (Other)
  Sender: FDA-Public Use
  Company Number: PHHY2011US11096

PATIENT
  Age: 83 Year
  Sex: Female

DRUGS (4)
  1. CHEMOTHERAPEUTICS NOS (NO INGREDIENTS/SUBSTANCES) [Concomitant]
  2. ZOMETA [Suspect]
     Indication: MULTIPLE MYELOMA
  3. LOVENOX [Suspect]
     Indication: THROMBOSIS PROPHYLAXIS
     Dosage: 60 MG, DAILY, 30 MG, DAILY
     Dates: start: 20070101, end: 20090101
  4. LOVENOX [Suspect]
     Indication: THROMBOSIS PROPHYLAXIS
     Dosage: 60 MG, DAILY, 30 MG, DAILY
     Dates: start: 20090101, end: 20110101

REACTIONS (2)
  - PLATELET COUNT DECREASED [None]
  - RENAL IMPAIRMENT [None]
